FAERS Safety Report 7124580-0 (Version None)
Quarter: 2010Q4

REPORT INFORMATION
  Report Type: 
  Country: None (occurrence: None)
  Receive Date: 20101123
  Receipt Date: 20101123
  Transmission Date: 20110411
  Serious: No
  Sender: FDA-Public Use
  Company Number: None

PATIENT
  Age: 52 Year
  Sex: Female

DRUGS (1)
  1. MIRENA [Suspect]
     Indication: LIVER DISORDER
     Dosage: INTRAUTERINE SYSTEM
     Route: 015
     Dates: start: 20090219, end: 20090506

REACTIONS (7)
  - ALANINE AMINOTRANSFERASE INCREASED [None]
  - ARTHRALGIA [None]
  - ASPARTATE AMINOTRANSFERASE INCREASED [None]
  - HEPATIC CYST [None]
  - HEPATIC NECROSIS [None]
  - HEPATOCELLULAR INJURY [None]
  - HEPATOTOXICITY [None]
